FAERS Safety Report 9882225 (Version 2)
Quarter: 2014Q3

REPORT INFORMATION
  Report Type: Spontaneous
  Country: US (occurrence: US)
  Receive Date: 20140207
  Receipt Date: 20140717
  Transmission Date: 20150326
  Serious: Yes (Hospitalization)
  Sender: FDA-Public Use
  Company Number: US-BAYER-2014-018943

PATIENT
  Age: 28 Year
  Sex: Female
  Weight: 83.45 kg

DRUGS (1)
  1. MIRENA [Suspect]
     Active Substance: LEVONORGESTREL
     Indication: CONTRACEPTION
     Dosage: 20 MCG/24HR, CONT
     Route: 015
     Dates: start: 20120130, end: 20120918

REACTIONS (11)
  - Injury [None]
  - Emotional distress [None]
  - Procedural pain [None]
  - Uterine perforation [None]
  - Abdominal pain lower [None]
  - Device dislocation [None]
  - Impaired work ability [None]
  - Anxiety [None]
  - Device failure [None]
  - Mental disorder [None]
  - Abdominal pain [None]

NARRATIVE: CASE EVENT DATE: 201209
